FAERS Safety Report 16349179 (Version 2)
Quarter: 2023Q2

REPORT INFORMATION
  Report Type: Report from Study
  Country: DE (occurrence: DE)
  Receive Date: 20190523
  Receipt Date: 20230502
  Transmission Date: 20230722
  Serious: Yes (Other)
  Sender: FDA-Public Use
  Company Number: DE-AMGEN-DEUNI2019079388

PATIENT
  Age: 69 Year
  Sex: Male
  Weight: 65 kg

DRUGS (21)
  1. PANITUMUMAB [Suspect]
     Active Substance: PANITUMUMAB
     Indication: Colorectal cancer metastatic
     Dosage: 390 MILLIGRAM
     Route: 042
     Dates: start: 20190410
  2. PANITUMUMAB [Suspect]
     Active Substance: PANITUMUMAB
     Dosage: 402 MILLIGRAM
     Route: 042
     Dates: start: 20190611
  3. PANITUMUMAB [Suspect]
     Active Substance: PANITUMUMAB
     Dosage: 420 MILLIGRAM
     Route: 042
     Dates: start: 20191118
  4. LEUCOVORIN [Suspect]
     Active Substance: LEUCOVORIN
     Indication: Colorectal cancer metastatic
     Dosage: 692 MILLIGRAM
     Route: 065
     Dates: start: 20190410
  5. LEUCOVORIN [Suspect]
     Active Substance: LEUCOVORIN
     Dosage: 700 MILLIGRAM
     Route: 065
     Dates: start: 20190611
  6. LEUCOVORIN [Suspect]
     Active Substance: LEUCOVORIN
     Dosage: 875 MILLIGRAM
     Route: 065
     Dates: start: 20190711
  7. LEUCOVORIN [Suspect]
     Active Substance: LEUCOVORIN
     Dosage: 895 MILLIGRAM
     Route: 065
     Dates: start: 20191118
  8. FLUOROURACIL [Suspect]
     Active Substance: FLUOROURACIL
     Indication: Colorectal cancer metastatic
     Dosage: 692 MILLIGRAM
     Route: 042
     Dates: start: 20190410
  9. FLUOROURACIL [Suspect]
     Active Substance: FLUOROURACIL
     Dosage: 4152 MILLIGRAM
     Route: 042
     Dates: start: 20190410
  10. FLUOROURACIL [Suspect]
     Active Substance: FLUOROURACIL
     Dosage: 700 MILLIGRAM
     Route: 042
     Dates: start: 20190611
  11. FLUOROURACIL [Suspect]
     Active Substance: FLUOROURACIL
     Dosage: 4200 MILLIGRAM
     Route: 042
     Dates: start: 20190611
  12. FLUOROURACIL [Suspect]
     Active Substance: FLUOROURACIL
     Dosage: 4200 MILLIGRAM
     Route: 042
     Dates: start: 20190611
  13. FLUOROURACIL [Suspect]
     Active Substance: FLUOROURACIL
     Dosage: 3500 MILLIGRAM
     Route: 042
     Dates: start: 20190711
  14. FLUOROURACIL [Suspect]
     Active Substance: FLUOROURACIL
     Dosage: 3580 MILLIGRAM
     Route: 042
     Dates: start: 20191118
  15. OXALIPLATIN [Suspect]
     Active Substance: OXALIPLATIN
     Indication: Colorectal cancer metastatic
     Dosage: 173 MILLIGRAM
     Route: 065
     Dates: start: 20190410
  16. OXALIPLATIN [Suspect]
     Active Substance: OXALIPLATIN
     Dosage: 138 MILLIGRAM
     Route: 065
     Dates: start: 20190508
  17. OXALIPLATIN [Suspect]
     Active Substance: OXALIPLATIN
     Dosage: 140 MILLIGRAM
     Route: 065
     Dates: start: 20190611
  18. DOXYCYCLIN-RATIOPHARM [Concomitant]
     Indication: Rash
     Dosage: 50 MILLIGRAM, QD
     Route: 048
     Dates: start: 20190424, end: 20200116
  19. ONDANSETRON BETA [Concomitant]
     Indication: Nausea
     Dosage: 8 MILLIGRAM, PER CYCLE
     Route: 042
     Dates: start: 20190410, end: 20200116
  20. AMLODIPINE MALEATE [Concomitant]
     Active Substance: AMLODIPINE MALEATE
     Indication: Hypertonia
     Dosage: 5 MILLIGRAM, QD
     Route: 048
     Dates: end: 201904
  21. METOPROLOL [Concomitant]
     Active Substance: METOPROLOL
     Indication: Hypertonia
     Dosage: 475 MILLIGRAM, BID
     Route: 048
     Dates: end: 201904

REACTIONS (1)
  - Polyneuropathy [Recovered/Resolved]

NARRATIVE: CASE EVENT DATE: 20190508
